FAERS Safety Report 5736149-0 (Version None)
Quarter: 2008Q2

REPORT INFORMATION
  Report Type: 
  Country: None (occurrence: None)
  Receive Date: 20080513
  Receipt Date: 20080508
  Transmission Date: 20081010
  Serious: Yes (Other)
  Sender: FDA-Public Use
  Company Number: B0515664A

PATIENT
  Sex: Male

DRUGS (1)
  1. NIQUITIN CQ 4MG LOZENGE [Suspect]
     Dosage: 4MG TEN TIMES PER DAY
     Route: 002
     Dates: start: 20071101

REACTIONS (1)
  - DEPENDENCE [None]
